FAERS Safety Report 7006557-9 (Version None)
Quarter: 2010Q3

REPORT INFORMATION
  Report Type: 
  Country: None (occurrence: None)
  Receive Date: 20100921
  Receipt Date: 20091030
  Transmission Date: 20110219
  Serious: No
  Sender: FDA-Public Use
  Company Number: US-WYE-H11132509

PATIENT
  Sex: Male
  Weight: 71.8 kg

DRUGS (3)
  1. XYNTHA [Suspect]
     Indication: FACTOR VIII DEFICIENCY
     Dosage: NOT PROVIDED
     Route: 042
     Dates: start: 20090820
  2. XYNTHA [Suspect]
     Dosage: PRODUCT RESTARTED ON AN UNSPECIFIED DATE
     Route: 042
  3. CELEBREX [Concomitant]
     Dosage: 100MG/DAY, DATE OF THERAPY NOT PROVIDED
     Route: 048

REACTIONS (2)
  - ARTHRALGIA [None]
  - CONDITION AGGRAVATED [None]
